FAERS Safety Report 8356914-3 (Version None)
Quarter: 2012Q2

REPORT INFORMATION
  Report Type: 
  Country: None (occurrence: None)
  Receive Date: 20120514
  Receipt Date: 20090908
  Transmission Date: 20120825
  Serious: No
  Sender: FDA-Public Use
  Company Number: US-TEVA-2009010232

PATIENT
  Sex: Female
  Weight: 57.204 kg

DRUGS (9)
  1. PRILOSEC [Concomitant]
  2. XANAX [Concomitant]
     Indication: SLEEP DISORDER
  3. PREMARIN [Concomitant]
  4. TREANDA [Suspect]
     Indication: CHRONIC LYMPHOCYTIC LEUKAEMIA
     Route: 042
     Dates: start: 20090601
  5. LAMICTAL [Concomitant]
     Indication: AFFECTIVE DISORDER
  6. RITUXAN [Concomitant]
     Indication: B-CELL SMALL LYMPHOCYTIC LYMPHOMA
  7. TREANDA [Suspect]
     Indication: B-CELL SMALL LYMPHOCYTIC LYMPHOMA
  8. RITUXAN [Concomitant]
     Indication: CHRONIC LYMPHOCYTIC LEUKAEMIA
  9. INDERAL [Concomitant]
     Indication: TREMOR

REACTIONS (5)
  - NAUSEA [None]
  - COUGH [None]
  - PYREXIA [None]
  - INFECTION [None]
  - CHILLS [None]
